FAERS Safety Report 20963900 (Version 2)
Quarter: 2022Q2

REPORT INFORMATION
  Report Type: Report from Study
  Country: US (occurrence: US)
  Receive Date: 20220615
  Receipt Date: 20220617
  Transmission Date: 20220721
  Serious: No
  Sender: FDA-Public Use
  Company Number: US-KYOWAKIRIN-2022BKK009027

PATIENT

DRUGS (4)
  1. NOURIANZ [Suspect]
     Active Substance: ISTRADEFYLLINE
     Indication: Dementia
     Dosage: 40 MG, QD
     Route: 048
     Dates: start: 20220412
  2. NOURIANZ [Suspect]
     Active Substance: ISTRADEFYLLINE
     Indication: Parkinson^s disease
  3. NOURIANZ [Suspect]
     Active Substance: ISTRADEFYLLINE
     Indication: Orthostatic hypotension
  4. NOURIANZ [Suspect]
     Active Substance: ISTRADEFYLLINE
     Indication: Hallucination, visual

REACTIONS (2)
  - Hernia [Unknown]
  - Product use in unapproved indication [Unknown]

NARRATIVE: CASE EVENT DATE: 20220412
